FAERS Safety Report 19630146 (Version 3)
Quarter: 2021Q3

REPORT INFORMATION
  Report Type: Spontaneous
  Country: US (occurrence: US)
  Receive Date: 20210728
  Receipt Date: 20210819
  Transmission Date: 20211014
  Serious: Yes (Death, Hospitalization, Other)
  Sender: FDA-Public Use
  Company Number: US-PFIZER INC-2021894035

PATIENT
  Age: 85 Year
  Sex: Male
  Weight: 83.91 kg

DRUGS (10)
  1. VYNDAMAX [Suspect]
     Active Substance: TAFAMIDIS
     Indication: AMYLOIDOSIS
     Dosage: 61 MG, 1X/DAY
     Dates: start: 201907, end: 20210706
  2. VYNDAMAX [Suspect]
     Active Substance: TAFAMIDIS
     Dosage: 61 MG, 1X/DAY  (61 MG ONCE DAILY)
     Dates: start: 20190702, end: 20210707
  3. TUDCABIL [Concomitant]
     Dosage: UNK
     Dates: end: 20210707
  4. MAGNESIUM SULFATE. [Concomitant]
     Active Substance: MAGNESIUM SULFATE
     Dosage: 288 MG
     Dates: start: 201907, end: 20210706
  5. DOXYCYCLINE CALCIUM [Concomitant]
     Active Substance: DOXYCYCLINE CALCIUM
     Dosage: UNK
     Dates: end: 20210707
  6. TUDCABIL [Concomitant]
     Dosage: 250 MG
     Dates: start: 201907, end: 20210706
  7. MAGNESIUM SULFATE. [Concomitant]
     Active Substance: MAGNESIUM SULFATE
     Dosage: UNK
     Dates: end: 20210707
  8. POTASSIUM CHLORIDE. [Concomitant]
     Active Substance: POTASSIUM CHLORIDE
     Dosage: 20 MEQ, 2X/DAY
     Dates: start: 201907, end: 20210706
  9. DOXYCYCLINE CALCIUM [Concomitant]
     Active Substance: DOXYCYCLINE CALCIUM
     Dosage: 100 MG
     Dates: start: 201907, end: 20210706
  10. POTASSIUM CHLORIDE. [Concomitant]
     Active Substance: POTASSIUM CHLORIDE
     Dosage: UNK
     Dates: end: 20210707

REACTIONS (3)
  - Renal failure [Fatal]
  - Hip fracture [Unknown]
  - Fall [Unknown]

NARRATIVE: CASE EVENT DATE: 20210707
